FAERS Safety Report 4445416-2 (Version None)
Quarter: 2004Q3

REPORT INFORMATION
  Report Type: 
  Country: None (occurrence: None)
  Receive Date: 20040730
  Receipt Date: 20030909
  Transmission Date: 20050211
  Serious: Yes (Other)
  Sender: FDA-Public Use
  Company Number: 2003-09-0750

PATIENT
  Sex: Male

DRUGS (1)
  1. INTRON A [Suspect]
     Dosage: SUBCUTANEOUS
     Route: 058

REACTIONS (1)
  - RETINAL EXUDATES [None]
